FAERS Safety Report 8487636-6 (Version None)
Quarter: 2012Q2

REPORT INFORMATION
  Report Type: 
  Country: None (occurrence: None)
  Receive Date: 20120402
  Receipt Date: 20090526
  Transmission Date: 20120825
  Serious: Yes (Hospitalization)
  Sender: FDA-Public Use
  Company Number: PHEH2009US04584

PATIENT
  Age: 62 Year
  Sex: Female
  Weight: 103.9 kg

DRUGS (8)
  1. ASPIRIN [Concomitant]
  2. CALCIUM WITH VITAMIN D (CALCIUM PHOPSHATE, CALCIUM SODIUM LACTATE, ERG [Concomitant]
  3. TEKTURNA HCT [Suspect]
     Indication: HYPERTENSION
     Dosage: 300 ALI/25 HCTZ, ORAL
     Route: 048
     Dates: start: 20080801, end: 20090401
  4. TEKTURNA HCT [Suspect]
     Indication: DIABETIC NEUROPATHY
     Dosage: 300 ALI/25 HCTZ, ORAL
     Route: 048
     Dates: start: 20080801, end: 20090401
  5. HUMALOG [Concomitant]
  6. LIPITOR [Concomitant]
  7. EXFORGE [Suspect]
     Indication: HYPERTENSION
     Dosage: 10 AML/320 VAL, ORAL
     Route: 048
     Dates: start: 20080101
  8. POTASSIUM CHLORIDE [Concomitant]

REACTIONS (1)
  - HYPERKALAEMIA [None]
